FAERS Safety Report 4936794-6 (Version None)
Quarter: 2006Q1

REPORT INFORMATION
  Report Type: 
  Country: None (occurrence: None)
  Receive Date: 20060302
  Receipt Date: 20060222
  Transmission Date: 20060701
  Serious: Yes (Hospitalization)
  Sender: FDA-Public Use
  Company Number: GXKR2006FR00921

PATIENT
  Age: 61 Year
  Sex: Female

DRUGS (2)
  1. SULFADIAZINE [Suspect]
     Indication: PYODERMA GANGRENOSUM
     Dosage: 200 MG, QD, TOPICAL
     Route: 061
  2. CORTICOSTEROIDS [Concomitant]

REACTIONS (8)
  - DEPRESSED LEVEL OF CONSCIOUSNESS [None]
  - HAEMODIALYSIS [None]
  - LEUKOPENIA [None]
  - METAL POISONING [None]
  - NEPHROPATHY TOXIC [None]
  - NEUTROPENIA [None]
  - PULMONARY OEDEMA [None]
  - RENAL FAILURE ACUTE [None]
